FAERS Safety Report 14309583 (Version 27)
Quarter: 2021Q1

REPORT INFORMATION
  Report Type: Spontaneous
  Country: CA (occurrence: CA)
  Receive Date: 20171220
  Receipt Date: 20210308
  Transmission Date: 20210419
  Serious: Yes (Other)
  Sender: FDA-Public Use
  Company Number: CA-CELLTRION INC.-2017CA014736

PATIENT

DRUGS (16)
  1. INFLECTRA [Suspect]
     Active Substance: INFLIXIMAB-DYYB
     Dosage: 400 MG 0, 2, 6 WEEKS, THEN EVERY 8 WEEKS
     Route: 042
     Dates: start: 20210226
  2. FENTANYL. [Concomitant]
     Active Substance: FENTANYL
     Indication: COLONOSCOPY
     Dosage: 75 UG
     Route: 042
     Dates: start: 20191025, end: 20191025
  3. INFLECTRA [Suspect]
     Active Substance: INFLIXIMAB-DYYB
     Dosage: 400 MG EVERY 4 WEEKS
     Route: 042
     Dates: start: 20180122, end: 20180416
  4. INFLECTRA [Suspect]
     Active Substance: INFLIXIMAB-DYYB
     Dosage: 400 MG 0, 2, 6 WEEKS, THEN EVERY 8 WEEKS
     Route: 042
     Dates: start: 20200723
  5. INFLECTRA [Suspect]
     Active Substance: INFLIXIMAB-DYYB
     Indication: CROHN^S DISEASE
     Dosage: 283.5 MG, (EVERY 0,2,6 WEEKS, THEN EVERY 8 WEEKS)
     Route: 042
     Dates: start: 20170821, end: 20171002
  6. INFLECTRA [Suspect]
     Active Substance: INFLIXIMAB-DYYB
     Dosage: 400 MG 0, 2, 6 WEEKS, THEN EVERY 8 WEEKS
     Route: 042
     Dates: start: 20200626
  7. PREDNISONE. [Concomitant]
     Active Substance: PREDNISONE
     Dosage: 40 MG (WILL DECREASE BY 5MG IN 2 WEEKS, THEN 5 MG EVERY WEEK)
     Route: 065
     Dates: start: 20170721
  8. INFLECTRA [Suspect]
     Active Substance: INFLIXIMAB-DYYB
     Dosage: 500 MG, EVERY 4 WEEKS
     Route: 042
     Dates: start: 20180710, end: 20180710
  9. INFLECTRA [Suspect]
     Active Substance: INFLIXIMAB-DYYB
     Dosage: 400 MG 0, 2, 6 WEEKS, THEN EVERY 8 WEEKS
     Route: 042
     Dates: start: 20201228
  10. INFLECTRA [Suspect]
     Active Substance: INFLIXIMAB-DYYB
     Dosage: 400 MG 0, 2, 6 WEEKS, THEN EVERY 8 WEEKS
     Route: 042
     Dates: start: 20200824
  11. INFLECTRA [Suspect]
     Active Substance: INFLIXIMAB-DYYB
     Dosage: 400 MG 0, 2, 6 WEEKS, THEN EVERY 8 WEEKS
     Route: 042
     Dates: start: 20201102
  12. MIDAZOLAM. [Concomitant]
     Active Substance: MIDAZOLAM
     Indication: COLONOSCOPY
     Dosage: UNK
  13. INFLECTRA [Suspect]
     Active Substance: INFLIXIMAB-DYYB
     Dosage: 283.5 MG, EVERY 4 WEEKS
     Route: 042
     Dates: start: 20171031, end: 20171227
  14. INFLECTRA [Suspect]
     Active Substance: INFLIXIMAB-DYYB
     Dosage: 500 MG, EVERY 4 WEEKS
     Route: 042
     Dates: start: 20180515, end: 20180710
  15. FENTANYL. [Concomitant]
     Active Substance: FENTANYL
     Indication: ENDOSCOPY SMALL INTESTINE
     Dosage: 50 UG, SINGLE
     Route: 042
     Dates: start: 20200610, end: 20200610
  16. MIDAZOLAM. [Concomitant]
     Active Substance: MIDAZOLAM
     Indication: ENDOSCOPY SMALL INTESTINE
     Dosage: 4 MG, ONCE
     Route: 042
     Dates: start: 20200610, end: 20200610

REACTIONS (38)
  - Small intestine ulcer [Unknown]
  - Small intestinal obstruction [Recovered/Resolved]
  - Red blood cell count decreased [Unknown]
  - Mean cell volume decreased [Not Recovered/Not Resolved]
  - Mean cell haemoglobin concentration decreased [Unknown]
  - Platelet count increased [Unknown]
  - Serum ferritin decreased [Recovered/Resolved]
  - C-reactive protein increased [Not Recovered/Not Resolved]
  - Faecal calprotectin increased [Unknown]
  - Condition aggravated [Not Recovered/Not Resolved]
  - Drug level above therapeutic [Unknown]
  - Nasal congestion [Unknown]
  - Feeling cold [Unknown]
  - Inflammatory bowel disease [Unknown]
  - Hypokalaemia [Unknown]
  - Intestinal obstruction [Recovered/Resolved]
  - Neutrophil count increased [Unknown]
  - Weight increased [Unknown]
  - Oropharyngeal pain [Recovered/Resolved]
  - Off label use [Unknown]
  - Therapeutic product effect incomplete [Not Recovered/Not Resolved]
  - Iron deficiency [Unknown]
  - White blood cell count increased [Unknown]
  - Weight decreased [Unknown]
  - Fatigue [Unknown]
  - Inappropriate schedule of product administration [Unknown]
  - Mean cell haemoglobin decreased [Not Recovered/Not Resolved]
  - Monocyte count increased [Unknown]
  - Nasopharyngitis [Not Recovered/Not Resolved]
  - Drug level decreased [Not Recovered/Not Resolved]
  - Heart rate increased [Unknown]
  - Malaise [Unknown]
  - Haemoglobin decreased [Not Recovered/Not Resolved]
  - Haematocrit decreased [Recovering/Resolving]
  - Red cell distribution width increased [Not Recovered/Not Resolved]
  - Vomiting [Unknown]
  - Vitamin D decreased [Unknown]
  - Nasopharyngitis [Unknown]

NARRATIVE: CASE EVENT DATE: 20171014
